FAERS Safety Report 7339167-4 (Version None)
Quarter: 2011Q1

REPORT INFORMATION
  Report Type: 
  Country: None (occurrence: None)
  Receive Date: 20110308
  Receipt Date: 20110308
  Transmission Date: 20110831
  Serious: Yes (Other)
  Sender: FDA-Public Use
  Company Number: PHHO2008JP02931

PATIENT
  Sex: Male
  Weight: 78 kg

DRUGS (22)
  1. SAWACILLIN [Concomitant]
  2. OMEPRAL [Concomitant]
  3. ZITHROMAX [Concomitant]
  4. LOXONIN [Concomitant]
     Indication: BACK PAIN
     Dosage: UNK
  5. LAC B [Concomitant]
  6. SOLU-MEDROL [Concomitant]
  7. PREDNISOLONE [Concomitant]
  8. EXCEGRAN [Concomitant]
  9. LIORESAL [Concomitant]
  10. ONEALFA [Concomitant]
     Indication: OSTEOPOROSIS
     Dosage: UNK
  11. SENNOSIDE [Concomitant]
     Indication: CONSTIPATION
     Dosage: UNK
  12. KLARICID [Concomitant]
  13. MAGNESIUM OXIDE [Concomitant]
     Indication: CONSTIPATION
     Dosage: UNK
  14. LENDORMIN [Concomitant]
     Dosage: UNK
     Dates: end: 20090512
  15. DEPAKENE [Concomitant]
     Dosage: UNK
     Dates: end: 20090512
  16. BENZALIN [Concomitant]
     Dosage: UNK
     Dates: end: 20090512
  17. GASTER [Concomitant]
  18. SODIUM CHLORIDE [Concomitant]
  19. FTY [Suspect]
     Indication: MULTIPLE SCLEROSIS RELAPSE
     Dosage: 0.5 MG, QD
     Route: 048
     Dates: start: 20080226
  20. MUCOSTA [Concomitant]
     Dosage: UNK
  21. DIAZEPAM [Concomitant]
     Dosage: UNK
     Dates: end: 20090512
  22. SELBEX [Concomitant]

REACTIONS (2)
  - HEART RATE DECREASED [None]
  - BRADYCARDIA [None]
